FAERS Safety Report 21553204 (Version 1)
Quarter: 2022Q4

REPORT INFORMATION
  Report Type: Spontaneous
  Country: PL (occurrence: PL)
  Receive Date: 20221104
  Receipt Date: 20221104
  Transmission Date: 20230113
  Serious: Yes (Hospitalization, Other)
  Sender: FDA-Public Use
  Company Number: PL-PFIZER INC-PV202200091572

PATIENT
  Age: 71 Year
  Sex: Female

DRUGS (9)
  1. CARBOPLATIN [Suspect]
     Active Substance: CARBOPLATIN
     Indication: Large cell lung cancer metastatic
     Dosage: TARGET DOSE OF AUC  = 5 MG/ML
  2. PEMETREXED [Suspect]
     Active Substance: PEMETREXED
     Indication: Large cell lung cancer metastatic
     Dosage: UNK UNK, CYCLIC
     Dates: start: 20210209
  3. PEMETREXED [Suspect]
     Active Substance: PEMETREXED
     Dosage: MAINTENANCE THERAPY, CYCLIC
     Dates: end: 20210907
  4. CISPLATIN [Suspect]
     Active Substance: CISPLATIN
     Indication: Large cell lung cancer metastatic
     Dosage: UNK UNK, CYCLIC
     Dates: start: 20210209
  5. PEMBROLIZUMAB [Suspect]
     Active Substance: PEMBROLIZUMAB
     Indication: Large cell lung cancer metastatic
     Dosage: UNK UNK, CYCLIC
     Dates: start: 20210209
  6. PEMBROLIZUMAB [Suspect]
     Active Substance: PEMBROLIZUMAB
     Dosage: MAINTENANCE THERAPY, CYCLIC
     Dates: end: 20210907
  7. VITAMIN B12 [Concomitant]
     Active Substance: CYANOCOBALAMIN
     Indication: Premedication
  8. FOLIC ACID [Concomitant]
     Active Substance: FOLIC ACID
     Indication: Premedication
  9. DEXAMETHASONE [Concomitant]
     Active Substance: DEXAMETHASONE
     Indication: Premedication

REACTIONS (2)
  - Acute kidney injury [Recovered/Resolved]
  - Fatigue [Unknown]
